FAERS Safety Report 7598663-5 (Version None)
Quarter: 2011Q3

REPORT INFORMATION
  Report Type: 
  Country: None (occurrence: None)
  Receive Date: 20110711
  Receipt Date: 20110628
  Transmission Date: 20111222
  Serious: Yes (Other)
  Sender: FDA-Public Use
  Company Number: MX-BIOGENIDEC-2011BI022752

PATIENT
  Age: 35 Year
  Sex: Female

DRUGS (3)
  1. TYSABRI [Suspect]
     Indication: MULTIPLE SCLEROSIS
     Route: 042
  2. DOSTINEX [Concomitant]
     Indication: SUPPRESSED LACTATION
  3. TYSABRI [Suspect]
     Route: 042
     Dates: start: 20110614

REACTIONS (3)
  - HERPES VIRUS INFECTION [None]
  - AUTOIMMUNE HEPATITIS [None]
  - THROMBOCYTOPENIA [None]
